FAERS Safety Report 22372914 (Version 1)
Quarter: 2023Q2

REPORT INFORMATION
  Report Type: Spontaneous
  Country: GB (occurrence: GB)
  Receive Date: 20230526
  Receipt Date: 20230526
  Transmission Date: 20230721
  Serious: Yes (Other)
  Sender: FDA-Public Use
  Company Number: None

PATIENT
  Age: 85 Year
  Sex: Female

DRUGS (2)
  1. FESOTERODINE [Suspect]
     Active Substance: FESOTERODINE
     Indication: Urge incontinence
     Dosage: 4 MG, 1X/DAY
     Route: 048
  2. OXYBUTYNIN [Concomitant]
     Active Substance: OXYBUTYNIN
     Dosage: 5 MG

REACTIONS (2)
  - Urinary incontinence [Unknown]
  - Drug ineffective [Unknown]
